FAERS Safety Report 5944168-4 (Version None)
Quarter: 2008Q4

REPORT INFORMATION
  Report Type: 
  Country: None (occurrence: None)
  Receive Date: 20081104
  Receipt Date: 20081020
  Transmission Date: 20090506
  Serious: Yes (Hospitalization)
  Sender: FDA-Public Use
  Company Number: 2008S1000382

PATIENT

DRUGS (1)
  1. CUBICIN [Suspect]
     Indication: OSTEOMYELITIS
     Dosage: 6 MG/KG;IV
     Route: 042

REACTIONS (3)
  - DEPRESSED LEVEL OF CONSCIOUSNESS [None]
  - EOSINOPHILIA [None]
  - OVERDOSE [None]
